FAERS Safety Report 10480891 (Version 1)
Quarter: 2014Q3

REPORT INFORMATION
  Report Type: Spontaneous
  Country: US (occurrence: US)
  Receive Date: 20140929
  Receipt Date: 20140929
  Transmission Date: 20150326
  Serious: Yes (Death, Hospitalization)
  Sender: FDA-Public Use
  Company Number: US-MYLANLABS-2014M1005605

PATIENT

DRUGS (2)
  1. FENTANYL. [Suspect]
     Active Substance: FENTANYL
     Indication: ACCIDENTAL EXPOSURE TO PRODUCT
     Route: 048
  2. FENTANYL. [Suspect]
     Active Substance: FENTANYL
     Indication: OFF LABEL USE

REACTIONS (6)
  - Pulmonary congestion [Unknown]
  - Accidental exposure to product [Fatal]
  - Vomiting [Unknown]
  - Toxicity to various agents [Fatal]
  - Oedema [Unknown]
  - Unresponsive to stimuli [Unknown]
